FAERS Safety Report 21497407 (Version 1)
Quarter: 2022Q4

REPORT INFORMATION
  Report Type: Spontaneous
  Country: DE (occurrence: DE)
  Receive Date: 20221023
  Receipt Date: 20221023
  Transmission Date: 20230113
  Serious: Yes (Other)
  Sender: FDA-Public Use
  Company Number: DE-BRISTOL-MYERS SQUIBB COMPANY-BMS-2021-070995

PATIENT
  Age: 56 Year
  Sex: Female

DRUGS (7)
  1. OPDIVO [Suspect]
     Active Substance: NIVOLUMAB
     Indication: Metastases to liver
     Dosage: 1 MILLIGRAM/KILOGRAM
     Route: 065
     Dates: start: 20210601, end: 2021
  2. OPDIVO [Suspect]
     Active Substance: NIVOLUMAB
     Indication: Ciliary body melanoma
  3. OPDIVO [Suspect]
     Active Substance: NIVOLUMAB
     Indication: Malignant melanoma
  4. YERVOY [Suspect]
     Active Substance: IPILIMUMAB
     Indication: Metastases to liver
     Dosage: 3 MILLIGRAM/KILOGRAM
     Route: 065
     Dates: start: 20210601, end: 2021
  5. YERVOY [Suspect]
     Active Substance: IPILIMUMAB
     Indication: Ciliary body melanoma
  6. YERVOY [Suspect]
     Active Substance: IPILIMUMAB
     Indication: Malignant melanoma
  7. METHYLPREDNISOLONE [Concomitant]
     Active Substance: METHYLPREDNISOLONE
     Indication: Product used for unknown indication
     Dosage: 500 MG I.V. FOR 3 DAYS, THEN 1 MG/KG PER KG BODY WEIGHT FOR FURTHER 7 DAYS
     Route: 042

REACTIONS (2)
  - Immune-mediated myocarditis [Unknown]
  - Pericardial effusion [Unknown]

NARRATIVE: CASE EVENT DATE: 20210621
